FAERS Safety Report 8613242 (Version 2)
Quarter: 2012Q4

REPORT INFORMATION
  Report Type: 
  Country: US (occurrence: US)
  Receive Date: 20120613
  Receipt Date: 20120921
  Transmission Date: 20130627
  Serious: Yes (Hospitalization)
  Sender: FDA-Public Use
  Company Number: US-ASTRAZENECA-2012SE36409

PATIENT
  Age: 75 Year
  Sex: Female

DRUGS (7)
  1. CAPRELSA [Suspect]
     Indication: THYROID CANCER
     Route: 048
     Dates: start: 20120517
  2. ASPIRIN [Concomitant]
  3. CALCIUM [Concomitant]
  4. EFFEXOR [Concomitant]
  5. LOMOTIL [Concomitant]
  6. MORPHINE [Concomitant]
  7. NORCO [Concomitant]

REACTIONS (5)
  - Dehydration [Unknown]
  - Diarrhoea [Unknown]
  - Chest discomfort [Not Recovered/Not Resolved]
  - Joint swelling [Not Recovered/Not Resolved]
  - Acne [Not Recovered/Not Resolved]
